FAERS Safety Report 7115965-7 (Version None)
Quarter: 2010Q4

REPORT INFORMATION
  Report Type: 
  Country: None (occurrence: None)
  Receive Date: 20101122
  Receipt Date: 20101115
  Transmission Date: 20110411
  Serious: Yes (Hospitalization)
  Sender: FDA-Public Use
  Company Number: US-SANOFI-AVENTIS-2010SA068523

PATIENT
  Sex: Female

DRUGS (4)
  1. PLAVIX [Suspect]
     Route: 065
     Dates: start: 20060701
  2. PLAVIX [Suspect]
     Indication: STENT PLACEMENT
     Route: 065
     Dates: start: 20060701
  3. PLAVIX [Suspect]
     Route: 065
     Dates: start: 20100401
  4. PLAVIX [Suspect]
     Route: 065
     Dates: start: 20100401

REACTIONS (8)
  - BACK PAIN [None]
  - CONTUSION [None]
  - DERMAL CYST [None]
  - DRUG HYPERSENSITIVITY [None]
  - HYPERTENSION [None]
  - PIGMENTATION DISORDER [None]
  - SKIN NODULE [None]
  - TRANSIENT ISCHAEMIC ATTACK [None]
